FAERS Safety Report 4408089-0 (Version None)
Quarter: 2004Q3

REPORT INFORMATION
  Report Type: 
  Country: None (occurrence: None)
  Receive Date: 20040722
  Receipt Date: 20040706
  Transmission Date: 20050211
  Serious: Yes (Death)
  Sender: FDA-Public Use
  Company Number: 2004-DE-03745GD(0)

PATIENT

DRUGS (2)
  1. ACETYLSALICYLIC ACID (ACETYLSALICYCLIC ACID) [Suspect]
  2. MELOXICAM (MELOXICAM) (NR) (MELOXICAM) [Suspect]

REACTIONS (1)
  - GASTROINTESTINAL HAEMORRHAGE [None]
